FAERS Safety Report 14074467 (Version 3)
Quarter: 2018Q1

REPORT INFORMATION
  Report Type: Report from Study
  Country: IT (occurrence: IT)
  Receive Date: 20171011
  Receipt Date: 20180214
  Transmission Date: 20180508
  Serious: Yes (Life-Threatening)
  Sender: FDA-Public Use
  Company Number: IT-ROCHE-2004064

PATIENT
  Age: 57 Year
  Sex: Female

DRUGS (5)
  1. NOZINAN [Suspect]
     Active Substance: LEVOMEPROMAZINE
     Indication: INTENTIONAL SELF-INJURY
     Dosage: 25 MG - 20 TABLETS
     Route: 048
     Dates: start: 20170911, end: 20170911
  2. CLONAZEPAM. [Suspect]
     Active Substance: CLONAZEPAM
     Indication: INTENTIONAL SELF-INJURY
     Dosage: 2 MG- 20 TABLET
     Route: 048
     Dates: start: 20170911, end: 20170911
  3. FLURAZEPAM [Suspect]
     Active Substance: FLURAZEPAM\FLURAZEPAM HYDROCHLORIDE
     Indication: INTENTIONAL SELF-INJURY
     Dosage: 30 X 30 MG CAPSULES
     Route: 048
     Dates: start: 20170911, end: 20170911
  4. ORAMORPH [Suspect]
     Active Substance: MORPHINE SULFATE
     Indication: INTENTIONAL SELF-INJURY
     Dosage: 20 MG/ML- 20ML DROPPER CONTAINER
     Route: 048
     Dates: start: 20170911, end: 20170911
  5. QUETIAPINE. [Suspect]
     Active Substance: QUETIAPINE
     Indication: INTENTIONAL SELF-INJURY
     Dosage: 40 X 150 MG TABLETS
     Route: 048
     Dates: start: 20170911, end: 20170911

REACTIONS (7)
  - Drug abuse [Unknown]
  - Hypotension [Unknown]
  - Loss of consciousness [Unknown]
  - Hypokalaemia [Unknown]
  - Electrocardiogram QT prolonged [Unknown]
  - Hypoxia [Unknown]
  - Intentional self-injury [Unknown]

NARRATIVE: CASE EVENT DATE: 20170911
